FAERS Safety Report 6830838-2 (Version None)
Quarter: 2010Q3

REPORT INFORMATION
  Report Type: 
  Country: None (occurrence: None)
  Receive Date: 20100712
  Receipt Date: 20080130
  Transmission Date: 20110219
  Serious: Yes (Hospitalization)
  Sender: FDA-Public Use
  Company Number: GB-JNJFOC-20100701927

PATIENT
  Age: 53 Year
  Sex: Female

DRUGS (1)
  1. ACETAMINOPHEN AND CODEINE PHOSPHATE [Suspect]
     Indication: PRODUCT USED FOR UNKNOWN INDICATION
     Route: 048

REACTIONS (7)
  - BLISTER [None]
  - COMA [None]
  - DEPRESSED LEVEL OF CONSCIOUSNESS [None]
  - DERMATITIS BULLOUS [None]
  - MIOSIS [None]
  - NARCOTIC INTOXICATION [None]
  - RESPIRATORY FAILURE [None]
